FAERS Safety Report 10577702 (Version 1)
Quarter: 2014Q4

REPORT INFORMATION
  Report Type: Spontaneous
  Country: AU (occurrence: AU)
  Receive Date: 20141111
  Receipt Date: 20141111
  Transmission Date: 20150529
  Serious: Yes (Other)
  Sender: FDA-Public Use
  Company Number: AU-SYMPLMED PHARMACEUTICALS-2014SYM00168

PATIENT
  Age: 37 Year
  Sex: Male

DRUGS (1)
  1. ACEON [Suspect]
     Active Substance: PERINDOPRIL ERBUMINE
     Indication: PROPHYLAXIS
     Dosage: 10 MG, QD
     Dates: start: 20090224, end: 20120511

REACTIONS (1)
  - Blood bicarbonate abnormal [Unknown]

NARRATIVE: CASE EVENT DATE: 20120511
